FAERS Safety Report 8344307-4 (Version None)
Quarter: 2012Q2

REPORT INFORMATION
  Report Type: 
  Country: None (occurrence: None)
  Receive Date: 20120508
  Receipt Date: 20090304
  Transmission Date: 20120825
  Serious: Yes (Hospitalization)
  Sender: FDA-Public Use
  Company Number: US-TEVA-US025354

PATIENT
  Sex: Male
  Weight: 67 kg

DRUGS (4)
  1. TESTOSTERONE [Concomitant]
     Route: 065
     Dates: start: 20060101
  2. FOLIC ACID [Concomitant]
     Dosage: 1 MILLIGRAM;
     Route: 065
     Dates: start: 20060101
  3. AMIODARONE HCL [Concomitant]
     Dosage: 200 MILLIGRAM;
     Route: 065
     Dates: start: 20060101
  4. TREANDA [Suspect]
     Indication: CHRONIC LYMPHOCYTIC LEUKAEMIA
     Dosage: CYCLIC
     Route: 042
     Dates: start: 20081203, end: 20090105

REACTIONS (1)
  - HAEMOGLOBIN DECREASED [None]
